FAERS Safety Report 18644516 (Version 3)
Quarter: 2023Q2

REPORT INFORMATION
  Report Type: Spontaneous
  Country: US (occurrence: US)
  Receive Date: 20201221
  Receipt Date: 20230530
  Transmission Date: 20230722
  Serious: Yes (Life-Threatening, Other)
  Sender: FDA-Public Use
  Company Number: US-PFIZER INC-2020500170

PATIENT
  Age: 89 Year
  Sex: Female

DRUGS (3)
  1. DILTIAZEM HYDROCHLORIDE [Suspect]
     Active Substance: DILTIAZEM HYDROCHLORIDE
     Indication: Atrioventricular block
     Dosage: 90 MG EVERY 12 HOURS
  2. LISINOPRIL [Suspect]
     Active Substance: LISINOPRIL
     Dosage: 10 MG, DAILY
  3. SOTALOL [Suspect]
     Active Substance: SOTALOL
     Indication: Atrioventricular block
     Dosage: 40 MG, DAILY

REACTIONS (1)
  - BRASH syndrome [Recovering/Resolving]
